FAERS Safety Report 13398304 (Version 1)
Quarter: 2017Q2

REPORT INFORMATION
  Report Type: Report from Study
  Country: US (occurrence: US)
  Receive Date: 20170403
  Receipt Date: 20170403
  Transmission Date: 20170830
  Serious: Yes (Death, Other)
  Sender: FDA-Public Use
  Company Number: US-TEVA-755640USA

PATIENT
  Age: 2 Week
  Sex: Female
  Weight: 4.1 kg

DRUGS (14)
  1. FUROSEMIDE. [Concomitant]
     Active Substance: FUROSEMIDE
     Route: 065
  2. SODIUM BICARBONATE. [Concomitant]
     Active Substance: SODIUM BICARBONATE
     Route: 065
  3. DOPAMINE [Concomitant]
     Active Substance: DOPAMINE\DOPAMINE HYDROCHLORIDE
     Route: 065
  4. POTASSIUM CHLORIDE. [Concomitant]
     Active Substance: POTASSIUM CHLORIDE
     Route: 065
  5. OCTREOTIDE. [Suspect]
     Active Substance: OCTREOTIDE
     Indication: HYPERINSULINISM
     Dosage: OFF-LABEL TREATMENT
     Route: 058
  6. ATROPINE. [Concomitant]
     Active Substance: ATROPINE
     Route: 065
  7. CISATRACURIUM BESILATE [Concomitant]
     Active Substance: CISATRACURIUM BESYLATE
     Route: 065
  8. GLUCOSE [Suspect]
     Active Substance: DEXTROSE
     Route: 042
  9. DIAZOXIDE [Concomitant]
     Active Substance: DIAZOXIDE
     Indication: HYPERINSULINISM
     Route: 042
  10. VANCOMYCIN [Concomitant]
     Active Substance: VANCOMYCIN
     Route: 065
  11. GENTAMICIN. [Concomitant]
     Active Substance: GENTAMICIN
     Route: 065
  12. CALCIUM GLUCONATE. [Concomitant]
     Active Substance: CALCIUM GLUCONATE
     Route: 065
  13. GLUCAGON. [Suspect]
     Active Substance: GLUCAGON
     Route: 042
  14. FENTANYL. [Concomitant]
     Active Substance: FENTANYL
     Route: 065

REACTIONS (5)
  - Necrotising colitis [Fatal]
  - Hypotension [Unknown]
  - Off label use [Unknown]
  - Hypoxia [Unknown]
  - Hyperglycaemia [Unknown]
